FAERS Safety Report 26190220 (Version 1)
Quarter: 2025Q4

REPORT INFORMATION
  Report Type: Spontaneous
  Country: IN (occurrence: IN)
  Receive Date: 20251223
  Receipt Date: 20251223
  Transmission Date: 20260118
  Serious: Yes (Death, Other)
  Sender: SOLARIS PHARMA CORPORATION
  Company Number: IN-SPC-000798

PATIENT
  Age: 2 Year
  Sex: Female

DRUGS (1)
  1. METRONIDAZOLE [Suspect]
     Active Substance: METRONIDAZOLE
     Indication: Gastroenteritis
     Route: 042

REACTIONS (2)
  - Acute hepatic failure [Fatal]
  - Product use in unapproved indication [Unknown]
